FAERS Safety Report 13451339 (Version 1)
Quarter: 2017Q2

REPORT INFORMATION
  Report Type: Spontaneous
  Country: IN (occurrence: None)
  Receive Date: 20170417
  Receipt Date: 20170417
  Transmission Date: 20170830
  Serious: Yes (Hospitalization, Other)
  Sender: FDA-Public Use
  Company Number: IN2017K2543LIT

PATIENT
  Age: 76 Year
  Sex: Male
  Weight: 52 kg

DRUGS (5)
  1. ENALAPRIL WORLD (ENALAPRIL) UNKNOWN [Suspect]
     Active Substance: ENALAPRIL
     Indication: HYPERTENSION
  2. VECURONIUM [Concomitant]
     Active Substance: VECURONIUM BROMIDE
  3. PROPOFOL. [Concomitant]
     Active Substance: PROPOFOL
  4. FENTANYL. [Concomitant]
     Active Substance: FENTANYL
  5. INSULIN [Concomitant]
     Active Substance: INSULIN NOS

REACTIONS (1)
  - Vasoplegia syndrome [None]
